FAERS Safety Report 24587864 (Version 2)
Quarter: 2024Q4

REPORT INFORMATION
  Report Type: Spontaneous
  Country: FR (occurrence: FR)
  Receive Date: 20241107
  Receipt Date: 20241113
  Transmission Date: 20250114
  Serious: Yes (Other)
  Sender: CSL BEHRING
  Company Number: FR-BEH-2024183511

PATIENT
  Sex: Female

DRUGS (1)
  1. PRIVIGEN [Suspect]
     Active Substance: HUMAN IMMUNOGLOBULIN G
     Dosage: UNK
     Route: 042
     Dates: start: 2014

REACTIONS (2)
  - Haemolytic anaemia [Unknown]
  - Haemolytic anaemia [Unknown]

NARRATIVE: CASE EVENT DATE: 20140101
